FAERS Safety Report 8137951-0 (Version None)
Quarter: 2012Q1

REPORT INFORMATION
  Report Type: 
  Country: None (occurrence: None)
  Receive Date: 20120213
  Receipt Date: 20120128
  Transmission Date: 20120608
  Serious: Yes (Other)
  Sender: FDA-Public Use
  Company Number: 2012010170

PATIENT
  Sex: Male

DRUGS (2)
  1. PLAVIX [Suspect]
     Indication: ANTICOAGULANT THERAPY
     Dosage: 75 MG (75 MG, 1 IN 1 D), ORAL
     Route: 048
  2. MUSE [Suspect]

REACTIONS (1)
  - URETHRAL HAEMORRHAGE [None]
